FAERS Safety Report 10906384 (Version 1)
Quarter: 2015Q1

REPORT INFORMATION
  Report Type: Spontaneous
  Country: IN (occurrence: IN)
  Receive Date: 20150312
  Receipt Date: 20150312
  Transmission Date: 20150721
  Serious: Yes (Other)
  Sender: FDA-Public Use
  Company Number: IN-AUROBINDO-AUR-APL-2015-02028

PATIENT
  Age: 46 Year
  Sex: Male

DRUGS (1)
  1. ZOLPIDEM [Suspect]
     Active Substance: ZOLPIDEM\ZOLPIDEM TARTRATE
     Indication: INSOMNIA
     Dosage: 10 MG, AT BED TIME
     Route: 048

REACTIONS (4)
  - Somnambulism [Recovered/Resolved]
  - Speech disorder [Recovered/Resolved]
  - Self-medication [Recovered/Resolved]
  - Memory impairment [Recovered/Resolved]
